FAERS Safety Report 8328183-1 (Version None)
Quarter: 2012Q2

REPORT INFORMATION
  Report Type: 
  Country: None (occurrence: None)
  Receive Date: 20120502
  Receipt Date: 20120426
  Transmission Date: 20120825
  Serious: Yes (Life-Threatening, Hospitalization, Other)
  Sender: FDA-Public Use
  Company Number: BR-PFIZER INC-2012097115

PATIENT
  Age: 62 Year
  Sex: Female
  Weight: 58 kg

DRUGS (3)
  1. CELEBREX [Suspect]
     Indication: ARTHRALGIA
     Dosage: 200 MG, 2X/DAY
     Route: 048
     Dates: start: 20120416, end: 20120419
  2. CELEBREX [Suspect]
     Indication: ARTHROPATHY
  3. DIOSMIN [Concomitant]
     Indication: VARICOSE VEIN
     Dosage: UNK
     Dates: start: 20120101

REACTIONS (8)
  - INSOMNIA [None]
  - WEIGHT DECREASED [None]
  - HEART RATE DECREASED [None]
  - SCIATICA [None]
  - MYOCARDIAL INFARCTION [None]
  - ANGINA PECTORIS [None]
  - BLOOD PRESSURE INCREASED [None]
  - HEADACHE [None]
